FAERS Safety Report 6806532-0 (Version None)
Quarter: 2010Q2

REPORT INFORMATION
  Report Type: 
  Country: None (occurrence: None)
  Receive Date: 20100629
  Receipt Date: 20080320
  Transmission Date: 20101027
  Serious: No
  Sender: FDA-Public Use
  Company Number: US-PFIZER INC-2008026326

PATIENT
  Sex: Female
  Weight: 65.909 kg

DRUGS (7)
  1. TIKOSYN [Suspect]
     Indication: ATRIAL FIBRILLATION
     Route: 048
     Dates: start: 20060101
  2. ASACOL [Concomitant]
     Dosage: 16 TABLETS
  3. ATENOLOL [Concomitant]
  4. PLAVIX [Concomitant]
  5. PROTONIX [Concomitant]
  6. LORAZEPAM [Concomitant]
     Dosage: 3 EVERY 24 HOURSAS NEEDED
  7. ASPIRIN [Concomitant]

REACTIONS (1)
  - COLONOSCOPY [None]
